FAERS Safety Report 22398118 (Version 3)
Quarter: 2023Q4

REPORT INFORMATION
  Report Type: Spontaneous
  Country: CN (occurrence: CN)
  Receive Date: 20230602
  Receipt Date: 20231108
  Transmission Date: 20240110
  Serious: Yes (Other)
  Sender: FDA-Public Use
  Company Number: CN-SUN PHARMACEUTICAL INDUSTRIES LTD-2023R1-392392

PATIENT
  Age: 57 Year
  Sex: Male

DRUGS (3)
  1. SITAGLIPTIN [Suspect]
     Active Substance: SITAGLIPTIN
     Indication: Blood glucose abnormal
     Dosage: 0.1 GRAM, QD
     Route: 048
  2. METFORMIN [Suspect]
     Active Substance: METFORMIN HYDROCHLORIDE
     Indication: Blood glucose abnormal
     Dosage: 0.5 MILLIGRAM, TID
     Route: 048
  3. GLIMEPIRIDE [Suspect]
     Active Substance: GLIMEPIRIDE
     Indication: Blood glucose abnormal
     Dosage: 2 MILLIGRAM, QD
     Route: 065

REACTIONS (1)
  - Drug ineffective [Unknown]
